FAERS Safety Report 4658162-7 (Version None)
Quarter: 2005Q2

REPORT INFORMATION
  Report Type: 
  Country: None (occurrence: None)
  Receive Date: 20050509
  Receipt Date: 20050426
  Transmission Date: 20051028
  Serious: Yes (Other)
  Sender: FDA-Public Use
  Company Number: 2005065806

PATIENT
  Age: 46 Year
  Sex: Male
  Weight: 101.1521 kg

DRUGS (3)
  1. BEXTRA [Suspect]
     Indication: ILL-DEFINED DISORDER
     Dosage: 20 MG (20 MG, 1 IN 1 D), ORAL
     Route: 048
     Dates: start: 20050324
  2. ALL OTHER THERAPEUTIC PRODUCTS (ALL OTHER THERAPEUTIC PRODUCTS) [Concomitant]
  3. VITAMINS (VITAMINS) [Concomitant]

REACTIONS (15)
  - BLISTER [None]
  - BURNING SENSATION [None]
  - CATHETER RELATED INFECTION [None]
  - DYSURIA [None]
  - FEELING ABNORMAL [None]
  - HYPERTENSION [None]
  - INFECTION [None]
  - INFLAMMATION [None]
  - INFLUENZA [None]
  - INSOMNIA [None]
  - PENIS DISORDER [None]
  - RASH [None]
  - SKIN EXFOLIATION [None]
  - URINARY INCONTINENCE [None]
  - WEIGHT DECREASED [None]
